FAERS Safety Report 4682332-5 (Version None)
Quarter: 2005Q2

REPORT INFORMATION
  Report Type: 
  Country: None (occurrence: None)
  Receive Date: 20050606
  Receipt Date: 20050523
  Transmission Date: 20051028
  Serious: Yes (Hospitalization)
  Sender: FDA-Public Use
  Company Number: US-AMGEN-US135348

PATIENT
  Sex: Female
  Weight: 99.9 kg

DRUGS (7)
  1. ENBREL [Suspect]
     Indication: RHEUMATOID ARTHRITIS
     Dates: start: 20040101
  2. INFLIXIMAB [Suspect]
     Route: 042
     Dates: start: 20040101
  3. ADALIMUMAB [Suspect]
     Dates: start: 20040101
  4. VICODIN [Concomitant]
  5. MEDROL [Concomitant]
  6. DIURETICS [Concomitant]
  7. ANTI-HISTAMINE TAB [Concomitant]

REACTIONS (1)
  - HOSPITALISATION [None]
